FAERS Safety Report 7481596-2 (Version None)
Quarter: 2011Q2

REPORT INFORMATION
  Report Type: 
  Country: None (occurrence: None)
  Receive Date: 20110516
  Receipt Date: 20101213
  Transmission Date: 20111010
  Serious: Yes (Other)
  Sender: FDA-Public Use
  Company Number: MK-ROCHE-747947

PATIENT
  Sex: Female
  Weight: 81 kg

DRUGS (1)
  1. IBANDRONATE SODIUM [Suspect]
     Indication: OSTEOPOROSIS
     Dosage: FORMULATION: 3 ML
     Route: 042
     Dates: start: 20101125, end: 20101125

REACTIONS (3)
  - JOINT SWELLING [None]
  - ARTHRALGIA [None]
  - PYREXIA [None]
